FAERS Safety Report 5975417-4 (Version None)
Quarter: 2008Q4

REPORT INFORMATION
  Report Type: 
  Country: None (occurrence: None)
  Receive Date: 20081202
  Receipt Date: 20071119
  Transmission Date: 20090506
  Serious: Yes (Other)
  Sender: FDA-Public Use
  Company Number: US-AMGEN-QUU253369

PATIENT
  Sex: Female

DRUGS (2)
  1. ENBREL [Suspect]
     Indication: PSORIATIC ARTHROPATHY
     Route: 058
     Dates: start: 20050909
  2. INTERFERON [Concomitant]

REACTIONS (13)
  - ALOPECIA [None]
  - DEPRESSION [None]
  - HEPATITIS C [None]
  - INJECTION SITE ERYTHEMA [None]
  - INJECTION SITE PRURITUS [None]
  - INJECTION SITE WARMTH [None]
  - MEMORY IMPAIRMENT [None]
  - MYALGIA [None]
  - PLATELET COUNT DECREASED [None]
  - PSORIATIC ARTHROPATHY [None]
  - SKIN STRIAE [None]
  - WEIGHT INCREASED [None]
  - WHITE BLOOD CELL COUNT DECREASED [None]
